FAERS Safety Report 18230917 (Version 2)
Quarter: 2025Q3

REPORT INFORMATION
  Report Type: Spontaneous
  Country: EU (occurrence: EU)
  Receive Date: 20200904
  Receipt Date: 20250701
  Transmission Date: 20251021
  Serious: Yes (Death, Life-Threatening, Hospitalization, Other)
  Sender: AUROBINDO
  Company Number: EU-MLMSERVICE-20200820-2445200-1

PATIENT
  Age: 63 Year
  Sex: Male

DRUGS (2)
  1. CARBOPLATIN [Suspect]
     Active Substance: CARBOPLATIN
     Indication: Lung adenocarcinoma stage III
     Route: 065
  2. ETOPOSIDE [Suspect]
     Active Substance: ETOPOSIDE
     Indication: Lung adenocarcinoma stage III
     Route: 065

REACTIONS (16)
  - Bronchopleural fistula [Fatal]
  - Oesophageal stenosis [Recovered/Resolved]
  - Radiation oesophagitis [Recovered/Resolved]
  - Pneumonia [Unknown]
  - Atelectasis [Recovered/Resolved]
  - Sepsis [Recovered/Resolved]
  - Acute respiratory failure [Recovered/Resolved]
  - Empyema [Recovered/Resolved]
  - Haemoptysis [Unknown]
  - Dysphagia [Recovered/Resolved]
  - Anaemia [Unknown]
  - Hypotension [Recovered/Resolved]
  - Lung consolidation [Recovered/Resolved]
  - Pleural effusion [Recovered/Resolved]
  - Mediastinal fibrosis [Recovered/Resolved]
  - Weight decreased [Recovered/Resolved]

NARRATIVE: CASE EVENT DATE: 20180101
